FAERS Safety Report 5103839-2 (Version None)
Quarter: 2006Q3

REPORT INFORMATION
  Report Type: 
  Country: None (occurrence: None)
  Receive Date: 20060911
  Receipt Date: 20060830
  Transmission Date: 20061208
  Serious: Yes (Hospitalization)
  Sender: FDA-Public Use
  Company Number: 2006106955

PATIENT
  Age: 51 Year
  Sex: Male
  Weight: 68 kg

DRUGS (3)
  1. CAMPTOSAR [Suspect]
     Indication: COLORECTAL CANCER
     Dosage: 200 MG/M2 (200 MG/M2, EVERY 2ND DAY), INTRAVENOUS
     Route: 042
     Dates: start: 20060124, end: 20060808
  2. AVASTIN [Suspect]
     Indication: COLORECTAL CANCER
     Dosage: 7.5 MG/M2 (7.5 MG/M2, EVERY 3RD WEEK), INTRAVENOUS
     Route: 042
     Dates: start: 20060124, end: 20060523
  3. CAPECITABINE (CAPECITABINE) [Suspect]
     Indication: COLORECTAL CANCER
     Dosage: 1600 MG/M2 (800 MG/M2, TWICE DAILY, DAY 1 TO 14, EVERY 3 WEEKS), ORAL
     Route: 048
     Dates: start: 20060124

REACTIONS (6)
  - BILE DUCT CANCER [None]
  - BILE DUCT STENOSIS [None]
  - BILIARY TRACT DISORDER [None]
  - CHOLESTASIS [None]
  - STENT PLACEMENT [None]
  - THROMBOSIS [None]
